FAERS Safety Report 8568166 (Version 2)
Quarter: 2013Q1

REPORT INFORMATION
  Report Type: Spontaneous
  Country: IN (occurrence: IN)
  Receive Date: 20120518
  Receipt Date: 20130130
  Transmission Date: 20140127
  Serious: Yes (Other)
  Sender: FDA-Public Use
  Company Number: IN-RANBAXY-2011R1-56486

PATIENT
  Age: 48 Year
  Sex: Male

DRUGS (1)
  1. PENTAZOCINE LACTATE [Suspect]
     Indication: PRODUCT USED FOR UNKNOWN INDICATION
     Dosage: AROUND 300 MG DAILY (10 INJECTIONS)
     Route: 065

REACTIONS (1)
  - Dystonia [Not Recovered/Not Resolved]
